FAERS Safety Report 22399420 (Version 3)
Quarter: 2024Q1

REPORT INFORMATION
  Report Type: Spontaneous
  Country: US (occurrence: US)
  Receive Date: 20230602
  Receipt Date: 20240327
  Transmission Date: 20240410
  Serious: No
  Sender: FDA-Public Use
  Company Number: US-BAYER-2023A075425

PATIENT
  Age: 68 Year
  Sex: Female

DRUGS (1)
  1. ESTRADIOL [Suspect]
     Active Substance: ESTRADIOL
     Dosage: 0.0375MG/1D 4TTSM
     Route: 062

REACTIONS (3)
  - Product dose omission issue [None]
  - Device adhesion issue [None]
  - Wrong technique in product usage process [None]
